FAERS Safety Report 9791604 (Version 1)
Quarter: 2014Q1

REPORT INFORMATION
  Report Type: Spontaneous
  Country: US (occurrence: US)
  Receive Date: 20140102
  Receipt Date: 20140102
  Transmission Date: 20141002
  Serious: Yes (Hospitalization)
  Sender: FDA-Public Use
  Company Number: US-ROCHE-1327033

PATIENT
  Sex: Female

DRUGS (1)
  1. CELLCEPT [Suspect]
     Indication: BONE MARROW TRANSPLANT
     Route: 065

REACTIONS (6)
  - Mucosal inflammation [Unknown]
  - Neutropenia [Unknown]
  - Pyrexia [Unknown]
  - Odynophagia [Unknown]
  - Pain [Unknown]
  - Transplant failure [Unknown]
